FAERS Safety Report 10075762 (Version 2)
Quarter: 2014Q2

REPORT INFORMATION
  Report Type: Spontaneous
  Country: US (occurrence: US)
  Receive Date: 20140414
  Receipt Date: 20140528
  Transmission Date: 20141212
  Serious: Yes (Hospitalization)
  Sender: FDA-Public Use
  Company Number: US-BAYER-2014-052917

PATIENT
  Age: 28 Year
  Sex: Female

DRUGS (11)
  1. YAZ [Suspect]
  2. YASMIN [Suspect]
  3. ALLEGRA-D [Concomitant]
  4. SINGULAIR [Concomitant]
  5. MAXAIR [Concomitant]
  6. NASACORT AQ [Concomitant]
  7. TORADOL [Concomitant]
  8. VICODIN [Concomitant]
  9. IBUPROFEN [Concomitant]
  10. ORTHO CYCLEN [Concomitant]
     Indication: CONTRACEPTION
     Dosage: UNK
     Dates: start: 20080515
  11. MOTRIN [Concomitant]

REACTIONS (2)
  - Pelvic venous thrombosis [None]
  - Deep vein thrombosis [None]
